FAERS Safety Report 23238728 (Version 1)
Quarter: 2023Q4

REPORT INFORMATION
  Report Type: Spontaneous
  Country: FR (occurrence: FR)
  Receive Date: 20231129
  Receipt Date: 20231129
  Transmission Date: 20240110
  Serious: Yes (Life-Threatening, Other)
  Sender: FDA-Public Use
  Company Number: FR-009507513-2311FRA002408

PATIENT
  Age: 71 Year
  Sex: Female
  Weight: 72 kg

DRUGS (2)
  1. CARBOPLATIN [Suspect]
     Active Substance: CARBOPLATIN
     Indication: Product used for unknown indication
     Dosage: UNK
     Route: 065
     Dates: start: 20231106
  2. PEMBROLIZUMAB [Suspect]
     Active Substance: PEMBROLIZUMAB
     Indication: Breast cancer
     Dosage: 200 MILLIGRAM ONCE A DAY (200 MILLIGRAM, FREQUENCY 1)
     Route: 042
     Dates: start: 20231030, end: 20231030

REACTIONS (2)
  - Anaphylactic shock [Recovered/Resolved]
  - Myocardial injury [Unknown]

NARRATIVE: CASE EVENT DATE: 20231030
